FAERS Safety Report 17170190 (Version 3)
Quarter: 2020Q1

REPORT INFORMATION
  Report Type: Spontaneous
  Country: JP (occurrence: JP)
  Receive Date: 20191218
  Receipt Date: 20200116
  Transmission Date: 20200409
  Serious: Yes (Other)
  Sender: FDA-Public Use
  Company Number: JP-PFIZER INC-2019542721

PATIENT
  Age: 82 Year
  Sex: Male
  Weight: 45 kg

DRUGS (5)
  1. FOSTOIN [Suspect]
     Active Substance: FOSPHENYTOIN SODIUM
     Dosage: 5 MG/KG, 1X/DAY
     Route: 041
     Dates: start: 20191203, end: 20191209
  2. FOSTOIN [Suspect]
     Active Substance: FOSPHENYTOIN SODIUM
     Indication: STATUS EPILEPTICUS
     Dosage: 22.5 MG/KG, 1X/DAY
     Route: 041
     Dates: start: 20191202, end: 20191203
  3. E KEPPRA [Concomitant]
     Active Substance: LEVETIRACETAM
     Dosage: 1000 MG, 1X/DAY
     Route: 048
     Dates: start: 20191204
  4. E KEPPRA [Concomitant]
     Active Substance: LEVETIRACETAM
     Indication: EPILEPSY
     Dosage: UNK
     Route: 041
     Dates: start: 20191202, end: 20191204
  5. DANTRIUM [Concomitant]
     Active Substance: DANTROLENE SODIUM
     Indication: NEUROLEPTIC MALIGNANT SYNDROME
     Dosage: UNK
     Dates: start: 20191202

REACTIONS (1)
  - Ventricular tachycardia [Recovered/Resolved]

NARRATIVE: CASE EVENT DATE: 20191209
